FAERS Safety Report 4370679-1 (Version None)
Quarter: 2004Q2

REPORT INFORMATION
  Report Type: 
  Country: None (occurrence: None)
  Receive Date: 20040604
  Receipt Date: 20040305
  Transmission Date: 20050107
  Serious: Yes (Life-Threatening, Hospitalization)
  Sender: FDA-Public Use
  Company Number: PHEH2004US02732

PATIENT
  Age: 54 Year
  Sex: Female
  Weight: 51 kg

DRUGS (9)
  1. ZOMETA [Suspect]
     Indication: OSTEOPOROSIS
     Dosage: 4 MG ONE TIME ONLY
     Route: 042
     Dates: start: 20040303, end: 20040303
  2. LEVOXYL [Concomitant]
  3. FLEXERIL [Concomitant]
  4. NASACORT [Concomitant]
  5. RHINOCORT [Concomitant]
  6. LIDODERM [Concomitant]
  7. PEPCID [Concomitant]
  8. DDAVP [Concomitant]
  9. LASIX [Concomitant]

REACTIONS (12)
  - ABDOMINAL PAIN [None]
  - ARTHRALGIA [None]
  - BLOOD GLUCOSE INCREASED [None]
  - NAUSEA [None]
  - PLATELET COUNT DECREASED [None]
  - PYREXIA [None]
  - RED BLOOD CELLS URINE POSITIVE [None]
  - SMALL INTESTINAL OBSTRUCTION [None]
  - SURGERY [None]
  - URINE KETONE BODY PRESENT [None]
  - VOMITING [None]
  - WHITE BLOOD CELL COUNT INCREASED [None]
